FAERS Safety Report 7789124-9 (Version None)
Quarter: 2011Q3

REPORT INFORMATION
  Report Type: 
  Country: None (occurrence: None)
  Receive Date: 20110930
  Receipt Date: 20110921
  Transmission Date: 20111222
  Serious: Yes (Other)
  Sender: FDA-Public Use
  Company Number: FR-VERTEX PHARMACEUTICALS INC.-AE-2011-000144

PATIENT
  Sex: Male
  Weight: 65 kg

DRUGS (7)
  1. CHONDROSULF [Concomitant]
     Indication: POLYARTHRITIS
     Route: 048
  2. PEGINTERFERON ALFA-2A [Concomitant]
     Route: 058
     Dates: start: 20110621
  3. VX-950 [Suspect]
     Indication: HEPATITIS C
     Route: 048
     Dates: start: 20110314, end: 20110607
  4. PEGINTERFERON ALFA-2A [Concomitant]
     Indication: HEPATITIS C
     Route: 058
     Dates: start: 20110314
  5. ACETAMINOPHEN [Concomitant]
     Indication: PYREXIA
     Route: 048
  6. RIBAVIRIN [Concomitant]
     Route: 048
  7. RIBAVIRIN [Concomitant]
     Indication: HEPATITIS C
     Route: 048
     Dates: start: 20110314

REACTIONS (3)
  - NEUTROPENIA [None]
  - THROMBOCYTOPENIA [None]
  - ANAEMIA [None]
